FAERS Safety Report 6702907-9 (Version None)
Quarter: 2010Q2

REPORT INFORMATION
  Report Type: 
  Country: None (occurrence: None)
  Receive Date: 20100429
  Receipt Date: 20100427
  Transmission Date: 20101027
  Serious: Yes (Other)
  Sender: FDA-Public Use
  Company Number: US-ALLERGAN-1004600US

PATIENT
  Age: 38 Year
  Sex: Female
  Weight: 49.887 kg

DRUGS (1)
  1. BOTOX COSMETIC [Suspect]
     Indication: SKIN WRINKLING
     Dosage: 36 UNITS, SINGLE
     Dates: start: 20100318, end: 20100318

REACTIONS (2)
  - INNER EAR INFLAMMATION [None]
  - SINUSITIS [None]
